FAERS Safety Report 8819372 (Version 1)
Quarter: 2012Q4

REPORT INFORMATION
  Report Type: Spontaneous
  Country: US (occurrence: None)
  Receive Date: 20121004
  Receipt Date: 20121004
  Transmission Date: 20130627
  Serious: Yes (Other)
  Sender: FDA-Public Use
  Company Number: None

PATIENT
  Age: 64 Year
  Sex: Male
  Weight: 80.74 kg

DRUGS (1)
  1. METHYL SALICYLATE\MENTHOL [Suspect]
     Indication: PAIN
     Route: 061
     Dates: start: 20120902, end: 20121002

REACTIONS (2)
  - Erythema [None]
  - Blister [None]
